FAERS Safety Report 19575478 (Version 1)
Quarter: 2021Q3

REPORT INFORMATION
  Report Type: Spontaneous
  Country: TR (occurrence: TR)
  Receive Date: 20210719
  Receipt Date: 20210719
  Transmission Date: 20211014
  Serious: Yes (Hospitalization, Other)
  Sender: FDA-Public Use
  Company Number: TR-TELIGENT, INC-20210700063

PATIENT

DRUGS (1)
  1. CIPROFLOXACIN UNSPECIFIED [Suspect]
     Active Substance: CIPROFLOXACIN
     Indication: URINARY TRACT INFECTION
     Dosage: UNKNOWN DOSE

REACTIONS (3)
  - Malaise [Recovering/Resolving]
  - Dermatitis bullous [Recovering/Resolving]
  - Pain [Recovering/Resolving]
